FAERS Safety Report 5762264-1 (Version None)
Quarter: 2008Q2

REPORT INFORMATION
  Report Type: 
  Country: None (occurrence: None)
  Receive Date: 20080609
  Receipt Date: 20080527
  Transmission Date: 20081010
  Serious: Yes (Hospitalization, Other)
  Sender: FDA-Public Use
  Company Number: GB-ELI_LILLY_AND_COMPANY-GB200712004506

PATIENT
  Age: 44 Year
  Sex: Female

DRUGS (6)
  1. OLANZAPINE [Suspect]
     Indication: BIPOLAR DISORDER
     Dosage: UNK, UNKNOWN
     Route: 065
  2. OLANZAPINE [Suspect]
     Dosage: 30 MG, DAILY (1/D)
     Route: 065
  3. OLANZAPINE [Suspect]
     Dosage: 20 MG, DAILY (1/D)
     Route: 065
  4. TRIFLUOPERAZINE [Concomitant]
     Dosage: UNK, UNKNOWN
     Route: 065
  5. VALPROATE SODIUM [Concomitant]
     Indication: MANIA
     Dosage: 1500 MG, DAILY (1/D)
     Route: 065
  6. VALPROATE SODIUM [Concomitant]
     Dosage: 2000 MG, DAILY (1/D) (ABOUT 35 MG/KG)
     Route: 065

REACTIONS (6)
  - ABDOMINAL DISTENSION [None]
  - HOSTILITY [None]
  - HYPERPROLACTINAEMIA [None]
  - IRRITABILITY [None]
  - SOMATOFORM DISORDER PREGNANCY [None]
  - WEIGHT INCREASED [None]
